FAERS Safety Report 7654284-7 (Version None)
Quarter: 2011Q3

REPORT INFORMATION
  Report Type: 
  Country: None (occurrence: None)
  Receive Date: 20110803
  Receipt Date: 20110627
  Transmission Date: 20111222
  Serious: Yes (Other)
  Sender: FDA-Public Use
  Company Number: PHHY2010ZA61202

PATIENT
  Sex: Female

DRUGS (1)
  1. VALSARTAN [Suspect]
     Dosage: 80 MG, UNK

REACTIONS (3)
  - PREMATURE LABOUR [None]
  - MATERNAL EXPOSURE DURING PREGNANCY [None]
  - BLOOD PRESSURE INCREASED [None]
